FAERS Safety Report 24290508 (Version 1)
Quarter: 2024Q3

REPORT INFORMATION
  Report Type: Report from Study
  Country: CN (occurrence: CN)
  Receive Date: 20240906
  Receipt Date: 20240906
  Transmission Date: 20241017
  Serious: Yes (Death, Life-Threatening, Hospitalization, Other)
  Sender: RANBAXY
  Company Number: CN-SUN PHARMACEUTICAL INDUSTRIES LTD-2024R1-465111

PATIENT
  Age: 75 Year
  Sex: Male
  Weight: 49 kg

DRUGS (29)
  1. CAPECITABINE [Suspect]
     Active Substance: CAPECITABINE
     Indication: Product used for unknown indication
     Dosage: 1800 MILLIGRAM/SQ. METER, DAILY
     Route: 048
     Dates: start: 20230531, end: 20230531
  2. CAPECITABINE [Suspect]
     Active Substance: CAPECITABINE
     Dosage: 1000 MILLIGRAM/SQ. METER
     Route: 048
     Dates: start: 20230531
  3. CAPECITABINE [Suspect]
     Active Substance: CAPECITABINE
     Dosage: 1000 MILLIGRAM/SQ. METER
     Route: 048
     Dates: start: 20230531
  4. CAPECITABINE [Suspect]
     Active Substance: CAPECITABINE
     Dosage: 1000 MILLIGRAM/SQ. METER
     Route: 048
     Dates: start: 20230531
  5. CAPECITABINE [Suspect]
     Active Substance: CAPECITABINE
     Dosage: 1000 MILLIGRAM/SQ. METER
     Route: 048
     Dates: start: 20230531
  6. CAPECITABINE [Suspect]
     Active Substance: CAPECITABINE
     Dosage: 1000 MILLIGRAM/SQ. METER
     Route: 048
     Dates: start: 20230531
  7. CAPECITABINE [Suspect]
     Active Substance: CAPECITABINE
     Dosage: 1000 MILLIGRAM/SQ. METER
     Route: 048
     Dates: start: 20230531
  8. OXALIPLATIN [Suspect]
     Active Substance: OXALIPLATIN
     Indication: Product used for unknown indication
     Dosage: 130 MILLIGRAM/SQ. METER
     Route: 042
     Dates: start: 20230531, end: 20230531
  9. OXALIPLATIN [Suspect]
     Active Substance: OXALIPLATIN
     Dosage: 125 MILLIGRAM, D1
     Route: 065
     Dates: start: 20200710
  10. OXALIPLATIN [Suspect]
     Active Substance: OXALIPLATIN
     Dosage: 150 MILLIGRAM, D1
     Route: 065
     Dates: start: 20200821
  11. OXALIPLATIN [Suspect]
     Active Substance: OXALIPLATIN
     Dosage: 125 MILLIGRAM, DL
     Route: 065
     Dates: start: 20201029
  12. OXALIPLATIN [Suspect]
     Active Substance: OXALIPLATIN
     Dosage: 130 MILLIGRAM/SQ. METER
     Route: 042
     Dates: start: 20230531, end: 20230531
  13. OXALIPLATIN [Suspect]
     Active Substance: OXALIPLATIN
     Dosage: 130 MILLIGRAM/SQ. METER
     Route: 042
     Dates: start: 20230531, end: 20230531
  14. OXALIPLATIN [Suspect]
     Active Substance: OXALIPLATIN
     Dosage: 130 MILLIGRAM/SQ. METER
     Route: 042
     Dates: start: 20230531
  15. ZANIDATAMAB [Suspect]
     Active Substance: ZANIDATAMAB
     Indication: Product used for unknown indication
     Dosage: 1800 MILLIGRAM
     Route: 042
     Dates: start: 20230531, end: 20230531
  16. ZANIDATAMAB [Suspect]
     Active Substance: ZANIDATAMAB
     Dosage: 1800 MILLIGRAM
     Route: 042
     Dates: start: 20230531
  17. ZANIDATAMAB [Suspect]
     Active Substance: ZANIDATAMAB
     Dosage: 1800 MILLIGRAM
     Route: 042
     Dates: start: 20230531
  18. ZANIDATAMAB [Suspect]
     Active Substance: ZANIDATAMAB
     Dosage: 1800 MILLIGRAM
     Route: 042
     Dates: start: 20230531
  19. ZANIDATAMAB [Suspect]
     Active Substance: ZANIDATAMAB
     Dosage: 1800 MILLIGRAM
     Route: 042
     Dates: start: 20230531
  20. ZANIDATAMAB [Suspect]
     Active Substance: ZANIDATAMAB
     Dosage: 1800 MILLIGRAM
     Route: 042
     Dates: start: 20230531
  21. TISLELIZUMAB [Suspect]
     Active Substance: TISLELIZUMAB
     Indication: Oesophageal adenocarcinoma
     Dosage: 200 MILLIGRAM, DAILY
     Route: 042
     Dates: start: 20230531, end: 20230531
  22. TISLELIZUMAB [Suspect]
     Active Substance: TISLELIZUMAB
     Dosage: 200 MILLIGRAM, DAILY
     Route: 042
     Dates: start: 20230531, end: 20230531
  23. GLICLAZIDE [Concomitant]
     Active Substance: GLICLAZIDE
     Indication: Product used for unknown indication
     Dosage: UNK
     Route: 065
     Dates: start: 2013
  24. METOPROLOL TARTRATE [Concomitant]
     Active Substance: METOPROLOL TARTRATE
     Indication: Product used for unknown indication
     Dosage: UNK
     Route: 065
     Dates: start: 2008
  25. METOCLOPRAMIDE HYDROCHLORIDE [Concomitant]
     Active Substance: METOCLOPRAMIDE HYDROCHLORIDE
     Indication: Product used for unknown indication
     Dosage: UNK
     Route: 051
     Dates: start: 20230618, end: 20230627
  26. LOPERAMIDE [Concomitant]
     Active Substance: LOPERAMIDE
     Indication: Product used for unknown indication
     Dosage: UNK
     Route: 065
     Dates: start: 20230531, end: 20230611
  27. Tegor [Concomitant]
     Indication: Product used for unknown indication
     Dosage: 50 MILLIGRAM, D2-15
     Route: 048
     Dates: start: 20200710
  28. Tegorgo [Concomitant]
     Indication: Product used for unknown indication
     Dosage: 50 MILLIGRAM, D2-15
     Route: 048
     Dates: start: 20200821
  29. Tegorgo [Concomitant]
     Dosage: 40 MILLIGRAM, BID, D2-15
     Route: 048
     Dates: start: 20201029

REACTIONS (15)
  - Hepatic failure [Fatal]
  - Disease progression [Fatal]
  - Abdominal pain upper [Unknown]
  - Diarrhoea [Unknown]
  - Hypokalaemia [Unknown]
  - Lymphocyte count increased [Unknown]
  - Vomiting [Unknown]
  - Nausea [Unknown]
  - Pyrexia [Unknown]
  - Gastrointestinal hypermotility [Unknown]
  - Hyponatraemia [Unknown]
  - Blood bilirubin increased [Unknown]
  - Hypoproteinaemia [Unknown]
  - Abdominal distension [Unknown]
  - Platelet count decreased [Unknown]

NARRATIVE: CASE EVENT DATE: 20230702
